FAERS Safety Report 7208437-2 (Version None)
Quarter: 2011Q1

REPORT INFORMATION
  Report Type: 
  Country: None (occurrence: None)
  Receive Date: 20110104
  Receipt Date: 20101221
  Transmission Date: 20110831
  Serious: Yes (Other)
  Sender: FDA-Public Use
  Company Number: PHHY2010US87631

PATIENT
  Sex: Female

DRUGS (19)
  1. EXFORGE HCT [Suspect]
     Dosage: 160/5/12.5 MG, TABLET, ONCE A DAY
     Dates: start: 20101113
  2. DIOVAN [Suspect]
     Dosage: 160 MG (IN THE MORNING AND EVENING0
     Dates: start: 20080701
  3. STOOL SOFTENER [Concomitant]
  4. NASONEX [Concomitant]
     Indication: HYPERSENSITIVITY
  5. RESTASIS [Concomitant]
  6. NITROSTAT [Concomitant]
  7. LEVOTHYROXINE [Concomitant]
  8. AMBIEN CR [Concomitant]
  9. DIAZEPAM [Concomitant]
  10. PREDNISONE [Concomitant]
  11. FORTICAL [Concomitant]
     Indication: OSTEOPOROSIS
  12. CELEBREX [Concomitant]
  13. VERAPAMIL [Concomitant]
  14. PREMARIN [Concomitant]
  15. PRILOSEC [Concomitant]
  16. CALCIUM [Concomitant]
  17. ATIVAN [Concomitant]
     Dosage: AS NEEDED
  18. PERCOCET [Concomitant]
  19. LASIX [Concomitant]

REACTIONS (7)
  - POLLAKIURIA [None]
  - JOINT SWELLING [None]
  - FEELING ABNORMAL [None]
  - BLOOD PRESSURE INCREASED [None]
  - HEART RATE DECREASED [None]
  - CATARACT [None]
  - SICK SINUS SYNDROME [None]
